FAERS Safety Report 9238641 (Version 2)
Quarter: 2013Q2

REPORT INFORMATION
  Report Type: Spontaneous
  Country: JP (occurrence: JP)
  Receive Date: 20130418
  Receipt Date: 20130418
  Transmission Date: 20140414
  Serious: Yes (Death, Life-Threatening)
  Sender: FDA-Public Use
  Company Number: JP-ASTELLAS-2013JP004052

PATIENT
  Age: 37 Year
  Sex: Female
  Weight: 45 kg

DRUGS (26)
  1. PROGRAF [Suspect]
     Indication: PROPHYLAXIS AGAINST GRAFT VERSUS HOST DISEASE
     Dosage: 0.12 UNK, CONTINUOUS
     Route: 041
     Dates: start: 20111108, end: 20111119
  2. FUNGUARD [Suspect]
     Indication: INFECTION PROPHYLAXIS
     Dosage: 50 MG, UID/QD
     Route: 042
     Dates: start: 20111104, end: 20111229
  3. PRIMPERAN [Suspect]
     Indication: NAUSEA
     Dosage: 10 MG, BID
     Route: 042
     Dates: start: 20111105, end: 20111108
  4. VANCOMYCIN /00314402/ [Suspect]
     Indication: INFECTION
     Dosage: 1 G, BID
     Route: 042
     Dates: start: 20111115, end: 20111121
  5. VICCLOX /00587301/ [Suspect]
     Indication: PROPHYLAXIS
     Dosage: 250 MG, UID/QD
     Route: 042
     Dates: start: 20111108, end: 20111212
  6. SEROTONE [Suspect]
     Indication: NAUSEA
     Dosage: 5 MG, BID
     Route: 042
     Dates: start: 20111105, end: 20111106
  7. SOLU-CORTEF [Suspect]
     Indication: PREMEDICATION
     Dosage: 200 MG, UID/QD
     Route: 042
     Dates: start: 20111109, end: 20111109
  8. MEYLON [Suspect]
     Indication: ELECTROLYTE IMBALANCE
     Dosage: 5 ML, QID
     Route: 042
     Dates: start: 20111104, end: 20111108
  9. LASIX /00032601/ [Suspect]
     Indication: DIURETIC THERAPY
     Dosage: 20 MG, UID/QD
     Route: 042
     Dates: start: 20111109, end: 20111109
  10. UROMITEXAN [Suspect]
     Indication: PROPHYLAXIS
     Dosage: 400 MG, TID
     Route: 042
     Dates: start: 20111105, end: 20111106
  11. FRAGMIN [Suspect]
     Indication: PROPHYLAXIS
     Dosage: 5000 IU, UID/QD
     Route: 042
     Dates: start: 20111029, end: 20111217
  12. ENDOXAN /00021101/ [Suspect]
     Indication: PREMEDICATION
     Dosage: 2700 MG, UID/QD
     Route: 042
     Dates: start: 20111105, end: 20111106
  13. TAKEPRON [Suspect]
     Indication: PROPHYLAXIS AGAINST GASTROINTESTINAL ULCER
     Dosage: 30 MG, UID/QD
     Route: 042
     Dates: start: 20111106, end: 20111212
  14. ASPARA POTASSIUM [Suspect]
     Indication: HYPOKALAEMIA
     Dosage: 10 MEQ, BID
     Route: 042
     Dates: start: 20111109, end: 20111227
  15. METHOTREXATE [Suspect]
     Indication: PROPHYLAXIS AGAINST GRAFT VERSUS HOST DISEASE
     Dosage: 20 MG, UID/QD
     Route: 042
     Dates: start: 20111110, end: 20111110
  16. METHOTREXATE [Suspect]
     Dosage: 14 MG, UID/QD
     Route: 042
     Dates: start: 20111112, end: 20111112
  17. METHOTREXATE [Suspect]
     Dosage: 14 MG, UID/QD
     Route: 042
     Dates: start: 20111115, end: 20111115
  18. LEUCOVORIN /00566702/ [Suspect]
     Indication: PROPHYLAXIS
     Dosage: UNK
     Route: 042
     Dates: start: 20111113, end: 20111127
  19. GRAN [Suspect]
     Indication: PROPHYLAXIS
     Dosage: 450 UG, UID/QD
     Route: 042
     Dates: start: 20111114, end: 20111123
  20. MAXIPIME [Suspect]
     Indication: INFECTION
     Dosage: 2 G, BID
     Route: 042
     Dates: start: 20111111, end: 20111226
  21. MORPHINE HYDROCHLORIDE [Suspect]
     Indication: PAIN
     Dosage: UNK
     Route: 042
     Dates: start: 20111113, end: 20111127
  22. ELNEOPA [Suspect]
     Indication: NUTRITIONAL SUPPLEMENTATION
     Dosage: 1000 ML, UID/QD
     Route: 042
     Dates: start: 20111116, end: 20120117
  23. MAGNESIUM SULFATE [Suspect]
     Indication: PROPHYLAXIS
     Dosage: 1 MEQ, UID/QD
     Route: 042
     Dates: start: 20111116, end: 20120130
  24. FINIBAX [Suspect]
     Indication: INFECTION
     Dosage: 0.25 MG, TID
     Route: 042
     Dates: start: 20111114, end: 20111205
  25. CALONAL [Concomitant]
     Indication: HEADACHE
     Dosage: 400 MG, BID
     Route: 048
     Dates: start: 20111110, end: 20111110
  26. CYLOCIDE [Concomitant]
     Route: 065

REACTIONS (3)
  - Posterior reversible encephalopathy syndrome [Recovering/Resolving]
  - Respiratory arrest [None]
  - Cerebral haemorrhage [None]
